FAERS Safety Report 7959769-1 (Version None)
Quarter: 2011Q4

REPORT INFORMATION
  Report Type: 
  Country: None (occurrence: None)
  Receive Date: 20111206
  Receipt Date: 20111117
  Transmission Date: 20120403
  Serious: Yes (Other)
  Sender: FDA-Public Use
  Company Number: DE-GLAXOSMITHKLINE-B0767328A

PATIENT
  Sex: Male

DRUGS (1)
  1. ALKERAN [Suspect]
     Indication: MULTIPLE MYELOMA
     Route: 042

REACTIONS (3)
  - HYPERSENSITIVITY [None]
  - CHOKING [None]
  - APATHY [None]
